FAERS Safety Report 9351078 (Version 2)
Quarter: 2013Q3

REPORT INFORMATION
  Report Type: Spontaneous
  Country: IE (occurrence: IE)
  Receive Date: 20130617
  Receipt Date: 20130805
  Transmission Date: 20140515
  Serious: Yes (Other)
  Sender: FDA-Public Use
  Company Number: IE-JNJFOC-20130605418

PATIENT
  Age: 60 Year
  Sex: Female

DRUGS (5)
  1. DOXORUBICIN HYDROCHLORIDE (CAELYX) [Suspect]
     Indication: OVARIAN CANCER METASTATIC
     Dosage: TREATMENT 3
     Route: 042
     Dates: start: 20130530
  2. DOXORUBICIN HYDROCHLORIDE (CAELYX) [Suspect]
     Indication: OVARIAN CANCER METASTATIC
     Dosage: TREATMENT 4
     Route: 042
     Dates: start: 20130620
  3. DOXORUBICIN HYDROCHLORIDE (CAELYX) [Suspect]
     Indication: OVARIAN CANCER METASTATIC
     Dosage: TREATMENT 5 DELAYED BY 1 WEEK
     Route: 042
     Dates: start: 20130717
  4. DOXORUBICIN HYDROCHLORIDE (CAELYX) [Suspect]
     Indication: OVARIAN CANCER METASTATIC
     Dosage: TREATMENT 2
     Route: 042
     Dates: start: 20130509
  5. DOXORUBICIN HYDROCHLORIDE (CAELYX) [Suspect]
     Indication: OVARIAN CANCER METASTATIC
     Dosage: TREATMENT 1
     Route: 042
     Dates: start: 20130417

REACTIONS (4)
  - Skin disorder [Recovering/Resolving]
  - Blood potassium decreased [Unknown]
  - Blood magnesium decreased [Unknown]
  - Mucosal inflammation [Unknown]
